FAERS Safety Report 9971702 (Version 1)
Quarter: 2014Q1

REPORT INFORMATION
  Report Type: Spontaneous
  Country: BR (occurrence: None)
  Receive Date: 20140304
  Receipt Date: 20140304
  Transmission Date: 20141002
  Serious: Yes (Hospitalization)
  Sender: FDA-Public Use
  Company Number: DSJ-2014-04559

PATIENT
  Age: 8 Decade
  Sex: Female
  Weight: 82 kg

DRUGS (5)
  1. BENICAR ANLO [Suspect]
     Indication: HYPERTENSION
     Dosage: 1 IN 1 D
     Route: 048
     Dates: start: 2013
  2. CITALOPRAM (CITALOPRAM) (CITALOPRAM) [Concomitant]
  3. OMEPRAZOLE (OMEPRAZOLE) (OMEPRAZOLE) [Concomitant]
  4. STRONTION RANELATE [Concomitant]
  5. BROMAZEPAM (BROMAZEPAM) (BROMAZEPAM) [Concomitant]

REACTIONS (10)
  - Fall [None]
  - Thyroid disorder [None]
  - Femur fracture [None]
  - Pain in extremity [None]
  - Oedema peripheral [None]
  - Bedridden [None]
  - Dysstasia [None]
  - Device related infection [None]
  - Urinary tract infection [None]
  - Medication error [None]
